FAERS Safety Report 4675121-9 (Version None)
Quarter: 2005Q2

REPORT INFORMATION
  Report Type: 
  Country: None (occurrence: None)
  Receive Date: 20050526
  Receipt Date: 20050523
  Transmission Date: 20051028
  Serious: Yes (Hospitalization, Other)
  Sender: FDA-Public Use
  Company Number: A-US2004-08303

PATIENT
  Age: 46 Year
  Sex: Female

DRUGS (24)
  1. TRACLEER [Suspect]
     Indication: PULMONARY HYPERTENSION
     Dosage: ORAL
     Route: 048
     Dates: start: 20031001, end: 20040801
  2. COUMADIN [Concomitant]
  3. FLOLAN [Concomitant]
  4. SILDENAFIL CITRATE [Concomitant]
  5. TREPROSTINIL [Concomitant]
  6. REMODELLIN (ALFACACIDOL) [Concomitant]
  7. VIAGRA [Concomitant]
  8. TOPROL-XL [Concomitant]
  9. ALDACTONE [Concomitant]
  10. ZOLOFT 9SERTRALINE HYDROCHLORIDE) [Concomitant]
  11. PHYTONADIONE [Concomitant]
  12. ZOFRAN [Concomitant]
  13. LASIX (FUROSEMIDE0 [Concomitant]
  14. NADOL (NADOLOL) [Concomitant]
  15. PROTONIX [Concomitant]
  16. SERTRALINE HCL [Concomitant]
  17. SPIRONOLACTONE (SPIRONOLCTONE) [Concomitant]
  18. PHENERGAN ^NATRAPHARM^ (PROMETHAZINE HYDROCHLORIDE) [Concomitant]
  19. K-DUR 10 [Concomitant]
  20. CITRAL +D (ERGOCALCIFEROL, CALCIUM CITRATE) [Concomitant]
  21. OXYGEN (OXYGEN) [Concomitant]
  22. LACTULOSE [Concomitant]
  23. POTASSIUM ACETATE [Concomitant]
  24. BICARBONATE [Concomitant]

REACTIONS (23)
  - CATHETER RELATED INFECTION [None]
  - CATHETERISATION CARDIAC [None]
  - CHOLELITHIASIS [None]
  - COAGULOPATHY [None]
  - DIARRHOEA [None]
  - DRUG TOXICITY [None]
  - DYSPNOEA [None]
  - ENCEPHALOPATHY [None]
  - HEPATIC CIRRHOSIS [None]
  - HEPATIC CYST [None]
  - HEPATIC NEOPLASM MALIGNANT [None]
  - HEPATIC STEATOSIS [None]
  - HEPATITIS [None]
  - HEPATOTOXICITY [None]
  - HYPERGAMMAGLOBULINAEMIA [None]
  - HYPERGLYCAEMIA [None]
  - HYPOALBUMINAEMIA [None]
  - HYPOCALCAEMIA [None]
  - HYPOPROTEINAEMIA [None]
  - INTERNATIONAL NORMALISED RATIO INCREASED [None]
  - OESOPHAGITIS [None]
  - PANCYTOPENIA [None]
  - WEIGHT DECREASED [None]
